FAERS Safety Report 6590916-2 (Version None)
Quarter: 2010Q1

REPORT INFORMATION
  Report Type: 
  Country: None (occurrence: None)
  Receive Date: 20100219
  Receipt Date: 20100218
  Transmission Date: 20100710
  Serious: Yes (Death)
  Sender: FDA-Public Use
  Company Number: CH-ROCHE-685972

PATIENT
  Age: 75 Year
  Sex: Male
  Weight: 104 kg

DRUGS (1)
  1. METHOXY POLYETHYLENE GLYCOL-EPOETIN BETA [Suspect]
     Dosage: FREQUENCY: MONTH
     Route: 065
     Dates: start: 20090401, end: 20100107

REACTIONS (1)
  - DEATH [None]
